FAERS Safety Report 8572818-5 (Version None)
Quarter: 2012Q3

REPORT INFORMATION
  Report Type: 
  Country: None (occurrence: None)
  Receive Date: 20120806
  Receipt Date: 20120724
  Transmission Date: 20120928
  Serious: No
  Sender: FDA-Public Use
  Company Number: US-ASTRAZENECA-2010SE49857

PATIENT
  Age: 67 Year
  Sex: Female

DRUGS (21)
  1. TOPROL-XL [Suspect]
     Dosage: 1/2 PO BID
     Route: 048
  2. FISH OIL [Concomitant]
     Route: 048
  3. HYDROCODONE BITARTRATE [Concomitant]
     Route: 048
  4. MAG. OTC [Concomitant]
     Route: 048
  5. POTASSIUM [Concomitant]
     Route: 048
  6. VITAMIN D [Concomitant]
     Route: 048
  7. FOLIC ACID [Concomitant]
     Route: 048
  8. NEXIUM [Suspect]
     Route: 048
  9. MIRALAX [Concomitant]
     Route: 048
  10. NEURONTIN [Concomitant]
     Route: 048
  11. HYDROCHLOROTHIAZIDE [Concomitant]
     Indication: OEDEMA
     Route: 048
  12. HYOSCYAMINE [Concomitant]
     Route: 048
  13. CLINDAMYCIN [Concomitant]
     Indication: TOOTH DISORDER
     Route: 048
  14. ASPIRIN [Concomitant]
     Route: 048
  15. NEXIUM [Suspect]
     Route: 048
  16. VITAMIN B-12 [Concomitant]
     Route: 048
  17. ACIDOPHILUS [Concomitant]
     Route: 048
  18. MOBIC [Concomitant]
     Route: 048
  19. ZINC SULFATE [Concomitant]
     Route: 048
  20. TOPROL-XL [Suspect]
     Dosage: GENERIC
     Route: 048
  21. CALCIUM [Concomitant]
     Route: 048

REACTIONS (14)
  - GASTROOESOPHAGEAL REFLUX DISEASE [None]
  - HYPERTENSION [None]
  - FIBROMYALGIA [None]
  - OSTEOARTHRITIS [None]
  - FIBROCYSTIC BREAST DISEASE [None]
  - PARAESTHESIA [None]
  - NEUROPATHY PERIPHERAL [None]
  - CHRONIC OBSTRUCTIVE PULMONARY DISEASE [None]
  - INTENTIONAL DRUG MISUSE [None]
  - SPINAL COLUMN STENOSIS [None]
  - ARTHRALGIA [None]
  - SWELLING [None]
  - GRAVITATIONAL OEDEMA [None]
  - VITAMIN B12 DEFICIENCY [None]
